FAERS Safety Report 4880086-0 (Version None)
Quarter: 2006Q1

REPORT INFORMATION
  Report Type: 
  Country: None (occurrence: None)
  Receive Date: 20060113
  Receipt Date: 20060104
  Transmission Date: 20060701
  Serious: Yes (Death)
  Sender: FDA-Public Use
  Company Number: US-BRISTOL-MYERS SQUIBB COMPANY-13235882

PATIENT
  Age: 63 Year

DRUGS (2)
  1. TAXOL [Suspect]
     Indication: BREAST CANCER
     Dates: start: 20051125, end: 20051202
  2. PARAPLATIN [Suspect]
     Indication: BREAST CANCER
     Dates: start: 20051125, end: 20051202

REACTIONS (1)
  - DEATH [None]
